FAERS Safety Report 22295812 (Version 1)
Quarter: 2023Q2

REPORT INFORMATION
  Report Type: Spontaneous
  Country: GB (occurrence: GB)
  Receive Date: 20230508
  Receipt Date: 20230508
  Transmission Date: 20230722
  Serious: Yes (Hospitalization, Other)
  Sender: FDA-Public Use
  Company Number: GB-PFIZER INC-PV202300055967

PATIENT
  Age: 69 Year
  Sex: Male
  Weight: 85 kg

DRUGS (2)
  1. DEXAMETHASONE SODIUM PHOSPHATE [Suspect]
     Active Substance: DEXAMETHASONE SODIUM PHOSPHATE
     Indication: Plasma cell myeloma
     Dosage: 40 MG, WEEKLY
     Route: 048
     Dates: start: 202011
  2. FLUTICASONE PROPIONATE\SALMETEROL XINAFOATE [Concomitant]
     Active Substance: FLUTICASONE PROPIONATE\SALMETEROL XINAFOATE
     Indication: Asthma
     Dosage: USED FOR 20+ YEARS

REACTIONS (18)
  - Pneumonia [Unknown]
  - Pulmonary embolism [Unknown]
  - Syncope [Unknown]
  - Epistaxis [Unknown]
  - Cataract [Unknown]
  - Atrial fibrillation [Unknown]
  - Loss of consciousness [Unknown]
  - Neuropathy peripheral [Unknown]
  - Anxiety [Unknown]
  - Mental impairment [Unknown]
  - Muscular weakness [Unknown]
  - Dyspnoea [Unknown]
  - Neutrophil count decreased [Unknown]
  - Psychiatric symptom [Unknown]
  - Insomnia [Unknown]
  - Mental disorder [Unknown]
  - Drug ineffective [Unknown]
  - Off label use [Unknown]

NARRATIVE: CASE EVENT DATE: 20201101
